FAERS Safety Report 9388882 (Version 2)
Quarter: 2013Q3

REPORT INFORMATION
  Report Type: Spontaneous
  Country: US (occurrence: US)
  Receive Date: 20130708
  Receipt Date: 20130830
  Transmission Date: 20140515
  Serious: Yes (Other)
  Sender: FDA-Public Use
  Company Number: US-TEVA-416773USA

PATIENT
  Sex: Female

DRUGS (5)
  1. MONTELUKAST [Suspect]
     Dosage: 10 MILLIGRAM DAILY;
  2. VITAMIN D2 [Concomitant]
  3. LEVOTHYROXINE [Concomitant]
     Dosage: 50 MICROGRAM DAILY;
  4. ATIVAN [Concomitant]
     Dosage: ^160 MG DAILY^
  5. PROCURAN [Concomitant]

REACTIONS (1)
  - Coeliac disease [Recovering/Resolving]
